FAERS Safety Report 7602371-1 (Version None)
Quarter: 2011Q3

REPORT INFORMATION
  Report Type: 
  Country: None (occurrence: None)
  Receive Date: 20110712
  Receipt Date: 20110705
  Transmission Date: 20111222
  Serious: Yes (Hospitalization)
  Sender: FDA-Public Use
  Company Number: US-BIOGENIDEC-2011BI017050

PATIENT
  Age: 26 Year
  Sex: Female

DRUGS (4)
  1. ALLEGRA [Concomitant]
     Indication: PREMEDICATION
  2. NEURONTIN [Concomitant]
  3. TYSABRI [Suspect]
     Indication: MULTIPLE SCLEROSIS
     Route: 042
     Dates: start: 20101202
  4. ALBUTEROL SULFATE AUTOHALER [Concomitant]
     Indication: WHEEZING

REACTIONS (2)
  - BRONCHITIS [None]
  - MULTIPLE SCLEROSIS RELAPSE [None]
